FAERS Safety Report 12482379 (Version 2)
Quarter: 2016Q2

REPORT INFORMATION
  Report Type: Report from Study
  Country: US (occurrence: US)
  Receive Date: 20160620
  Receipt Date: 20160629
  Transmission Date: 20160815
  Serious: Yes (Hospitalization)
  Sender: FDA-Public Use
  Company Number: US-GILEAD-2016-0219115

PATIENT
  Age: 53 Year
  Sex: Female

DRUGS (6)
  1. LIPITOR [Concomitant]
     Active Substance: ATORVASTATIN CALCIUM
  2. COUMADIN [Concomitant]
     Active Substance: WARFARIN SODIUM
  3. OXYGEN. [Concomitant]
     Active Substance: OXYGEN
     Dosage: 4-6L PRN
  4. AMBRISENTAN [Suspect]
     Active Substance: AMBRISENTAN
     Indication: PULMONARY ARTERIAL HYPERTENSION
     Dosage: 10 MG, UNK
     Route: 065
  5. VELETRI [Concomitant]
     Active Substance: EPOPROSTENOL
  6. REVATIO [Concomitant]
     Active Substance: SILDENAFIL CITRATE

REACTIONS (7)
  - Hypoxia [Unknown]
  - Respiratory disorder [Unknown]
  - Productive cough [Unknown]
  - Pyrexia [Unknown]
  - Chills [Unknown]
  - Tachycardia [Unknown]
  - Fluid retention [Recovered/Resolved]

NARRATIVE: CASE EVENT DATE: 20160226
